FAERS Safety Report 5620756-X (Version None)
Quarter: 2008Q1

REPORT INFORMATION
  Report Type: 
  Country: None (occurrence: None)
  Receive Date: 20080208
  Receipt Date: 20080130
  Transmission Date: 20080703
  Serious: Yes (Other)
  Sender: FDA-Public Use
  Company Number: JP-PFIZER INC-2008011599

PATIENT
  Age: 75 Year
  Sex: Male

DRUGS (3)
  1. LIPITOR [Suspect]
     Route: 048
  2. ARTIST [Concomitant]
     Route: 048
     Dates: start: 20040803
  3. BLOPRESS [Concomitant]
     Route: 048
     Dates: start: 20040803

REACTIONS (1)
  - RENAL IMPAIRMENT [None]
